FAERS Safety Report 17455316 (Version 1)
Quarter: 2020Q1

REPORT INFORMATION
  Report Type: Spontaneous
  Country: US (occurrence: US)
  Receive Date: 20200225
  Receipt Date: 20200225
  Transmission Date: 20200409
  Serious: No
  Sender: FDA-Public Use
  Company Number: US-ASTRAZENECA-2020SE24686

PATIENT
  Sex: Male

DRUGS (1)
  1. SYNAGIS [Suspect]
     Active Substance: PALIVIZUMAB
     Indication: ANTIVIRAL PROPHYLAXIS
     Dosage: STRENGTH: 100MG/ML AND 50MG/0.5ML. DOSE: 15MG/KG MONTHLY.
     Route: 030
     Dates: start: 20191105

REACTIONS (2)
  - Treatment noncompliance [Unknown]
  - Malaise [Unknown]
